FAERS Safety Report 4734147-7 (Version None)
Quarter: 2005Q3

REPORT INFORMATION
  Report Type: 
  Country: None (occurrence: None)
  Receive Date: 20050729
  Receipt Date: 20050719
  Transmission Date: 20060218
  Serious: Yes (Disabling)
  Sender: FDA-Public Use
  Company Number: 2005104657

PATIENT
  Age: 47 Year
  Sex: Male
  Weight: 127.0072 kg

DRUGS (5)
  1. BEXTRA [Suspect]
     Indication: COMPLEX REGIONAL PAIN SYNDROME
     Dosage: 20 MG (20 MG, 1 IN 1 D), ORAL
     Route: 048
     Dates: end: 20050501
  2. ACIPHEX (RABEPRAZOZLE SODIUM) [Concomitant]
  3. TRAZODONE (TRAZODONE) [Concomitant]
  4. TEGRETOL [Concomitant]
  5. MIRAPEX [Concomitant]

REACTIONS (2)
  - DRUG INEFFECTIVE [None]
  - NERVE CONDUCTION STUDIES ABNORMAL [None]
